FAERS Safety Report 5322440-9 (Version None)
Quarter: 2007Q2

REPORT INFORMATION
  Report Type: 
  Country: None (occurrence: None)
  Receive Date: 20070511
  Receipt Date: 20070504
  Transmission Date: 20071010
  Serious: Yes (Other)
  Sender: FDA-Public Use
  Company Number: PHMT2007CA01183

PATIENT
  Age: 46 Year
  Sex: Male

DRUGS (8)
  1. COMTAN [Suspect]
     Dosage: 200 MG QID
     Route: 048
     Dates: start: 20070101
  2. CARBIDOPA AND LEVODOPA [Concomitant]
  3. MORPHINE [Concomitant]
  4. CRESTOR [Concomitant]
  5. PARIET [Concomitant]
  6. METFORMIN HCL [Concomitant]
  7. GLYBURIDE [Concomitant]
  8. MICARDIS [Concomitant]

REACTIONS (1)
  - NEPHROLITHIASIS [None]
